FAERS Safety Report 9099231 (Version 2)
Quarter: 2013Q1

REPORT INFORMATION
  Report Type: Spontaneous
  Country: US (occurrence: US)
  Receive Date: 20130214
  Receipt Date: 20130301
  Transmission Date: 20140127
  Serious: Yes (Other)
  Sender: FDA-Public Use
  Company Number: US-PFIZER INC-2013058785

PATIENT
  Age: 49 Year
  Sex: Female
  Weight: 66 kg

DRUGS (4)
  1. CELEBREX [Suspect]
     Indication: ARTHRITIS
     Dosage: 200 MG, 2X/DAY
     Route: 048
  2. XANAX [Suspect]
     Indication: ANXIETY
     Dosage: 1 MG, 3X/DAY
     Route: 048
  3. PLAQUENIL [Concomitant]
     Dosage: 200 MG, 1X/DAY
  4. EEMT [Concomitant]
     Indication: HYSTERECTOMY
     Dosage: UNK

REACTIONS (4)
  - Lower limb fracture [Unknown]
  - Road traffic accident [Unknown]
  - Ankle fracture [Unknown]
  - Rheumatoid arthritis [Unknown]
